FAERS Safety Report 13895675 (Version 3)
Quarter: 2017Q4

REPORT INFORMATION
  Report Type: Spontaneous
  Country: US (occurrence: US)
  Receive Date: 20170823
  Receipt Date: 20171121
  Transmission Date: 20180320
  Serious: Yes (Other)
  Sender: FDA-Public Use
  Company Number: US-PFIZER INC-2017361674

PATIENT
  Age: 64 Year
  Sex: Female

DRUGS (2)
  1. XELJANZ XR [Suspect]
     Active Substance: TOFACITINIB CITRATE
     Dosage: 11 MG, UNK
     Dates: start: 20170202, end: 20171010
  2. XELJANZ XR [Suspect]
     Active Substance: TOFACITINIB CITRATE
     Indication: RHEUMATOID ARTHRITIS
     Dosage: 11 MG, ONCE PER DAY
     Route: 048
     Dates: start: 20161208

REACTIONS (6)
  - Rotator cuff syndrome [Unknown]
  - Contusion [Unknown]
  - Condition aggravated [Unknown]
  - Fall [Unknown]
  - Renal cancer [Unknown]
  - Ureteric injury [Unknown]

NARRATIVE: CASE EVENT DATE: 20170824
